FAERS Safety Report 13055867 (Version 1)
Quarter: 2016Q4

REPORT INFORMATION
  Report Type: Spontaneous
  Country: CH (occurrence: DE)
  Receive Date: 20161222
  Receipt Date: 20161222
  Transmission Date: 20170207
  Serious: Yes (Other)
  Sender: FDA-Public Use
  Company Number: CH-LPDUSPRD-20161146

PATIENT
  Age: 54 Year
  Sex: Female

DRUGS (12)
  1. ATORVASTATIN [Concomitant]
     Active Substance: ATORVASTATIN
     Dosage: 20 MG
     Route: 065
  2. NO DRUG NAME [Concomitant]
     Dosage: 10 MG
     Route: 065
  3. EUTHYROX [Concomitant]
     Active Substance: LEVOTHYROXINE SODIUM
     Dosage: 50 MCG
     Route: 065
  4. NEBIVOLOL. [Concomitant]
     Active Substance: NEBIVOLOL
     Dosage: 0.5 TAB DAILY
     Route: 048
  5. NO DRUG NAME [Concomitant]
     Dosage: 1 TAB DAILY
     Route: 048
  6. FERINJECT [Suspect]
     Active Substance: FERRIC CARBOXYMALTOSE
     Dosage: 10 ML DILUTED IN 100 ML NACL
     Route: 041
     Dates: start: 20161123, end: 20161129
  7. FOSTER [Concomitant]
     Active Substance: BECLOMETHASONE\FORMOTEROL
     Dosage: 100/6 UG PUFF
     Route: 055
  8. CIPRALEX [Concomitant]
     Active Substance: ESCITALOPRAM OXALATE
     Dosage: 20 MG
     Route: 065
  9. CA + D3 [Concomitant]
     Dosage: DOSE UNKNOWN
     Route: 065
  10. PANTOPRAZOLE SODIUM SESQUIHYDRATE [Concomitant]
     Active Substance: PANTOPRAZOLE SODIUM
     Dosage: 20 MG
     Route: 065
  11. VIGANTOLETTEN [Concomitant]
     Active Substance: CHOLECALCIFEROL
     Dosage: 1000 EI
     Route: 065
  12. CYANOCOBALAMIN (VIT B12) [Concomitant]
     Dosage: 1 TABLET DAILY
     Route: 065

REACTIONS (4)
  - Extravasation [Unknown]
  - Joint swelling [Unknown]
  - Arthralgia [Unknown]
  - Erythema [Not Recovered/Not Resolved]

NARRATIVE: CASE EVENT DATE: 20161201
